FAERS Safety Report 7544067-0 (Version None)
Quarter: 2011Q2

REPORT INFORMATION
  Report Type: 
  Country: None (occurrence: None)
  Receive Date: 20110613
  Receipt Date: 20051018
  Transmission Date: 20111010
  Serious: Yes (Hospitalization, Other)
  Sender: FDA-Public Use
  Company Number: PHHO2005CA05377

PATIENT
  Sex: Female

DRUGS (4)
  1. MORPHINE SULFATE [Concomitant]
     Dosage: UNK
  2. SANDOSTATIN LAR [Suspect]
     Indication: CARCINOID TUMOUR
     Dosage: 20 MG, QMO
     Dates: start: 20040910
  3. MORPHINE SULFATE [Concomitant]
     Dosage: UNK
  4. OXYCONTIN [Concomitant]
     Dosage: UNK

REACTIONS (8)
  - NASOPHARYNGITIS [None]
  - OROPHARYNGEAL PAIN [None]
  - HAEMATOCHEZIA [None]
  - BONE PAIN [None]
  - ANAEMIA [None]
  - ABDOMINAL PAIN [None]
  - CONSTIPATION [None]
  - HYPOTENSION [None]
